FAERS Safety Report 19188615 (Version 1)
Quarter: 2021Q2

REPORT INFORMATION
  Report Type: Spontaneous
  Country: PL (occurrence: PL)
  Receive Date: 20210428
  Receipt Date: 20210428
  Transmission Date: 20210717
  Serious: Yes (Other)
  Sender: FDA-Public Use
  Company Number: PL-SA-2021SA135771

PATIENT
  Age: 60 Year
  Sex: Male
  Weight: 69 kg

DRUGS (3)
  1. DOCETAXEL. [Suspect]
     Active Substance: DOCETAXEL
     Dosage: 89.5 MG
     Route: 041
     Dates: start: 20210111, end: 20210111
  2. FLUOROURACIL. [Suspect]
     Active Substance: FLUOROURACIL
     Dosage: 4654 MG
     Route: 040
     Dates: start: 20210111, end: 20210112
  3. OXALIPLATIN. [Suspect]
     Active Substance: OXALIPLATIN
     Dosage: 152.15 MG
     Route: 041
     Dates: start: 20210111, end: 20210111

REACTIONS (1)
  - Neutropenia [Recovered/Resolved with Sequelae]

NARRATIVE: CASE EVENT DATE: 20210125
